FAERS Safety Report 11421598 (Version 2)
Quarter: 2015Q3

REPORT INFORMATION
  Report Type: Other
  Country: SE (occurrence: SE)
  Receive Date: 20150826
  Receipt Date: 20150921
  Transmission Date: 20151125
  Serious: Yes (Other)
  Sender: FDA-Public Use
  Company Number: SE-TAKEDA-2015TJP015938

PATIENT
  Age: 23 Year
  Sex: Female

DRUGS (7)
  1. NASONEX [Concomitant]
     Active Substance: MOMETASONE FUROATE
     Indication: PRODUCT USED FOR UNKNOWN INDICATION
     Dosage: UNK
     Route: 045
  2. DEVITRE [Concomitant]
     Indication: PRODUCT USED FOR UNKNOWN INDICATION
     Dosage: UNK, QD
     Route: 048
  3. DEVITRE [Concomitant]
     Route: 065
  4. YASMIN [Concomitant]
     Active Substance: DROSPIRENONE\ETHINYL ESTRADIOL
     Indication: PRODUCT USED FOR UNKNOWN INDICATION
     Dosage: UNK
     Route: 048
  5. BRINTELLIX [Suspect]
     Active Substance: VORTIOXETINE HYDROBROMIDE
     Indication: MAJOR DEPRESSION
     Dosage: UNK UNK, QD
     Route: 048
     Dates: start: 20150630, end: 20150724
  6. NASONEX [Concomitant]
     Active Substance: MOMETASONE FUROATE
     Route: 065
  7. EGAZIL [Concomitant]
     Active Substance: HYOSCYAMINE SULFATE
     Indication: PRODUCT USED FOR UNKNOWN INDICATION
     Dosage: 0.2 MG, AS NECESSARY
     Route: 048

REACTIONS (2)
  - Abdominal pain [Recovered/Resolved]
  - Chills [Recovered/Resolved]

NARRATIVE: CASE EVENT DATE: 201507
